FAERS Safety Report 9200433 (Version 1)
Quarter: 2013Q1

REPORT INFORMATION
  Report Type: Spontaneous
  Country: DE (occurrence: DE)
  Receive Date: 20130329
  Receipt Date: 20130329
  Transmission Date: 20140127
  Serious: Yes (Hospitalization)
  Sender: FDA-Public Use
  Company Number: DE-ASTRAZENECA-2013SE19139

PATIENT
  Age: 60 Year
  Sex: Female

DRUGS (2)
  1. SEROQUEL PROLONG [Suspect]
     Route: 048
     Dates: start: 20120907
  2. SOLIAN [Suspect]
     Route: 048
     Dates: start: 20121116, end: 20121229

REACTIONS (3)
  - Hyponatraemia [Recovered/Resolved]
  - Unresponsive to stimuli [Unknown]
  - Vomiting [Unknown]
